FAERS Safety Report 19981122 (Version 1)
Quarter: 2021Q4

REPORT INFORMATION
  Report Type: Spontaneous
  Country: US (occurrence: US)
  Receive Date: 20211021
  Receipt Date: 20211021
  Transmission Date: 20220304
  Serious: No
  Sender: FDA-Public Use
  Company Number: US-PFIZER INC-202100951232

PATIENT
  Age: 59 Year
  Sex: Female
  Weight: 69.85 kg

DRUGS (5)
  1. XELJANZ XR [Suspect]
     Active Substance: TOFACITINIB CITRATE
     Indication: Rheumatoid arthritis
     Dosage: 11 MG, DAILY
     Route: 048
     Dates: start: 20210511
  2. VITAMIN C [Concomitant]
     Active Substance: ASCORBIC ACID
     Indication: Supplementation therapy
     Dosage: 1000 MG, DAILY (500MG TABLET, 2 TABLETS DAILY)
     Route: 048
     Dates: start: 202107
  3. ZINC [Concomitant]
     Active Substance: ZINC
     Indication: Supplementation therapy
     Dosage: 50 MG, DAILY (50MG CAPLET, DAILY)
     Route: 048
     Dates: start: 2021
  4. ASCORBIC ACID\ZINC [Concomitant]
     Active Substance: ASCORBIC ACID\ZINC
     Indication: Supplementation therapy
     Dosage: 1 DF, DAILY
     Route: 060
     Dates: start: 202107
  5. SYNTHROID [Concomitant]
     Active Substance: LEVOTHYROXINE SODIUM
     Dosage: 112 UG, DAILY
     Dates: start: 2002

REACTIONS (2)
  - Blood cholesterol increased [Unknown]
  - Low density lipoprotein increased [Unknown]

NARRATIVE: CASE EVENT DATE: 20210719
